FAERS Safety Report 9575310 (Version 10)
Quarter: 2014Q2

REPORT INFORMATION
  Report Type: Spontaneous
  Country: US (occurrence: US)
  Receive Date: 20131001
  Receipt Date: 20140422
  Transmission Date: 20141212
  Serious: Yes (Life-Threatening, Hospitalization, Other)
  Sender: FDA-Public Use
  Company Number: US-PFIZER INC-2013278318

PATIENT
  Age: 5 Year
  Sex: Male
  Weight: 26.67 kg

DRUGS (2)
  1. IBUPROFEN [Suspect]
     Indication: PYREXIA
     Dosage: ONE DOSE
     Route: 065
     Dates: start: 201101
  2. CHILDREN^S TYLENOL [Suspect]
     Dosage: UNK
     Route: 048
     Dates: start: 2011

REACTIONS (8)
  - Acute hepatic failure [Unknown]
  - Hepatitis [Unknown]
  - Coagulopathy [Unknown]
  - Transaminases increased [Unknown]
  - Hyperammonaemia [Unknown]
  - Encephalopathy [Unknown]
  - Acute tonsillitis [Unknown]
  - Drug ineffective [Unknown]
